FAERS Safety Report 4984108-8 (Version None)
Quarter: 2006Q1

REPORT INFORMATION
  Report Type: 
  Country: None (occurrence: None)
  Receive Date: 20060302
  Receipt Date: 20050510
  Transmission Date: 20060701
  Serious: Yes (Hospitalization)
  Sender: FDA-Public Use
  Company Number: 1814

PATIENT
  Age: 75 Year
  Sex: Male
  Weight: 82 kg

DRUGS (4)
  1. TARGRETIN [Suspect]
     Indication: MYCOSIS FUNGOIDES
     Dosage: 600 MG DAILY PO
     Route: 048
     Dates: start: 20050427
  2. CLINDAMYCIN [Concomitant]
  3. ENALAPRIL MALEATE [Concomitant]
  4. TAMSULOSIN HYDROCHLORIDE [Concomitant]

REACTIONS (1)
  - RASH [None]
